FAERS Safety Report 8881750 (Version 1)
Quarter: 2012Q4

REPORT INFORMATION
  Report Type: 
  Country: US (occurrence: US)
  Receive Date: 20121105
  Receipt Date: 20121105
  Transmission Date: 20130627
  Serious: No
  Sender: FDA-Public Use
  Company Number: US-JNJFOC-20121012686

PATIENT
  Age: 38 Year
  Sex: Female
  Weight: 72.58 kg

DRUGS (2)
  1. DURAGESIC [Suspect]
     Indication: EHLERS-DANLOS SYNDROME
     Route: 062
     Dates: start: 20121021
  2. NUCYNTA [Concomitant]
     Indication: EHLERS-DANLOS SYNDROME
     Route: 048
     Dates: start: 20121001

REACTIONS (2)
  - Wrong technique in drug usage process [Not Recovered/Not Resolved]
  - Drug prescribing error [Unknown]
